FAERS Safety Report 15112100 (Version 2)
Quarter: 2018Q3

REPORT INFORMATION
  Report Type: Spontaneous
  Country: JP (occurrence: JP)
  Receive Date: 20180705
  Receipt Date: 20180817
  Transmission Date: 20181010
  Serious: Yes (Other)
  Sender: FDA-Public Use
  Company Number: JP-MITSUBISHI TANABE PHARMA CORPORATION-MTPC2018-0012711

PATIENT
  Age: 76 Year
  Sex: Male

DRUGS (2)
  1. RADICUT [Suspect]
     Active Substance: EDARAVONE
     Route: 065
  2. NOVASTAN [Suspect]
     Active Substance: ARGATROBAN
     Indication: EMBOLIC STROKE
     Route: 065

REACTIONS (1)
  - Gastric ulcer haemorrhage [Recovered/Resolved]
